FAERS Safety Report 7784802-X (Version None)
Quarter: 2011Q3

REPORT INFORMATION
  Report Type: 
  Country: None (occurrence: None)
  Receive Date: 20110928
  Receipt Date: 20110922
  Transmission Date: 20111222
  Serious: Yes (Disabling)
  Sender: FDA-Public Use
  Company Number: US-PFIZER INC-2011226119

PATIENT
  Sex: Male

DRUGS (2)
  1. INTERFERON ALFA-2A [Concomitant]
     Dosage: UNK
  2. NEUMEGA [Suspect]
     Dosage: UNK

REACTIONS (2)
  - OVERDOSE [None]
  - ADVERSE EVENT [None]
